FAERS Safety Report 22322550 (Version 1)
Quarter: 2023Q2

REPORT INFORMATION
  Report Type: Spontaneous
  Country: US (occurrence: US)
  Receive Date: 20230516
  Receipt Date: 20230516
  Transmission Date: 20230721
  Serious: No
  Sender: FDA-Public Use
  Company Number: US-CADILA HEALTHCARE LIMITED-US-ZYDUS-085433

PATIENT

DRUGS (2)
  1. DESONIDE [Suspect]
     Active Substance: DESONIDE
     Indication: Skin lesion
     Dosage: 0.05 PERCENT
     Route: 065
     Dates: start: 202202, end: 202203
  2. CICLOPIROX [Suspect]
     Active Substance: CICLOPIROX
     Indication: Product used for unknown indication
     Dosage: 0.77 PERCENT
     Route: 065

REACTIONS (2)
  - Intentional product use issue [Recovered/Resolved]
  - Drug ineffective [Recovered/Resolved]

NARRATIVE: CASE EVENT DATE: 20220201
